FAERS Safety Report 9229907 (Version 1)
Quarter: 2013Q2

REPORT INFORMATION
  Report Type: Spontaneous
  Country: US (occurrence: None)
  Receive Date: 20130412
  Receipt Date: 20130412
  Transmission Date: 20140414
  Serious: Yes (Hospitalization)
  Sender: FDA-Public Use
  Company Number: None

PATIENT
  Age: 70 Year
  Sex: Female
  Weight: 63.1 kg

DRUGS (10)
  1. PANITUMUMAB [Suspect]
     Indication: OVARIAN CANCER
     Route: 042
     Dates: start: 20130327, end: 20130404
  2. GEMCITABINE [Suspect]
     Indication: OVARIAN CANCER
     Dosage: 3WKS OF 4
     Route: 042
     Dates: start: 20130327, end: 20130404
  3. METOPROLOL [Concomitant]
  4. TYLENOL [Concomitant]
  5. MIRALAX [Concomitant]
  6. MULTIVITAMIN [Concomitant]
  7. COMPAZINE [Concomitant]
  8. PRILOSEC [Concomitant]
  9. HYDROCHLOROTHIAZIDE [Concomitant]
  10. COUMADIN [Concomitant]

REACTIONS (3)
  - Rash erythematous [None]
  - Pain in extremity [None]
  - Deep vein thrombosis [None]
